FAERS Safety Report 8230876-1 (Version None)
Quarter: 2012Q1

REPORT INFORMATION
  Report Type: 
  Country: None (occurrence: None)
  Receive Date: 20120321
  Receipt Date: 20120305
  Transmission Date: 20120608
  Serious: Yes (Other)
  Sender: FDA-Public Use
  Company Number: GGEL20120300214

PATIENT
  Age: 38 Year
  Sex: Female

DRUGS (1)
  1. NOREGESTIMATE AND ETHINYL (NOREGESTIMATE, ETHINYL [Suspect]
     Indication: CONTRACEPTION
     Dosage: 1 IN 1 ID, ORAL, 10 FEBRUARY
     Route: 048
     Dates: start: 20110501

REACTIONS (3)
  - DRUG INEFFECTIVE [None]
  - PREGNANCY ON ORAL CONTRACEPTIVE [None]
  - MATERNAL EXPOSURE DURING PREGNANCY [None]
